FAERS Safety Report 15329125 (Version 1)
Quarter: 2018Q3

REPORT INFORMATION
  Report Type: Spontaneous
  Country: US (occurrence: US)
  Receive Date: 20180829
  Receipt Date: 20180829
  Transmission Date: 20181010
  Serious: Yes (Other)
  Sender: FDA-Public Use
  Company Number: US-009507513-1808USA010395

PATIENT
  Age: 81 Year
  Sex: Male

DRUGS (2)
  1. KEYTRUDA [Suspect]
     Active Substance: PEMBROLIZUMAB
     Dosage: UNK
     Route: 065
  2. AZACITIDINE. [Suspect]
     Active Substance: AZACITIDINE
     Dosage: UNK
     Route: 065

REACTIONS (8)
  - Pulmonary mass [Unknown]
  - Cough [Unknown]
  - Chest pain [Unknown]
  - Pneumonia [Unknown]
  - Pyrexia [Unknown]
  - Feeling abnormal [Unknown]
  - Pneumonia fungal [Unknown]
  - Back pain [Unknown]
